FAERS Safety Report 8310849 (Version 3)
Quarter: 2013Q2

REPORT INFORMATION
  Report Type: Spontaneous
  Country: CA (occurrence: CA)
  Receive Date: 20111226
  Receipt Date: 20130410
  Transmission Date: 20140414
  Serious: Yes (Other)
  Sender: FDA-Public Use
  Company Number: PHHY2011CA098699

PATIENT
  Age: 64 Year
  Sex: Female

DRUGS (4)
  1. ACLASTA [Suspect]
     Indication: OSTEOPOROSIS
     Dosage: 5 MG/ ANNUALLY
     Route: 042
     Dates: start: 20091005
  2. ACLASTA [Suspect]
     Dosage: 5 MG/ ANNUALLY
     Route: 042
     Dates: start: 20101203
  3. CALTRATE [Concomitant]
     Dosage: FOR SEVERAL YEARS
  4. VITAMIN D [Concomitant]

REACTIONS (3)
  - Breast cancer [Recovering/Resolving]
  - Breast mass [Unknown]
  - Alopecia [Unknown]
